FAERS Safety Report 25085607 (Version 1)
Quarter: 2025Q1

REPORT INFORMATION
  Report Type: Spontaneous
  Country: CA (occurrence: CA)
  Receive Date: 20250317
  Receipt Date: 20250317
  Transmission Date: 20250409
  Serious: Yes (Death, Life-Threatening, Hospitalization, Disabling, Congenital Anomaly, Other)
  Sender: GALDERMA
  Company Number: CA-GALDERMA-CA2025003430

PATIENT

DRUGS (507)
  1. DOXYCYCLINE [Suspect]
     Active Substance: DOXYCYCLINE
     Indication: Rheumatoid arthritis
     Route: 065
  2. DOXYCYCLINE [Suspect]
     Active Substance: DOXYCYCLINE
     Indication: Product used for unknown indication
     Route: 065
  3. ACETAMINOPHEN [Concomitant]
     Active Substance: ACETAMINOPHEN
     Indication: Rheumatoid arthritis
     Route: 058
  4. ACETAMINOPHEN [Concomitant]
     Active Substance: ACETAMINOPHEN
     Indication: Product used for unknown indication
     Route: 065
  5. ACETAMINOPHEN [Concomitant]
     Active Substance: ACETAMINOPHEN
     Indication: Crohn^s disease
     Route: 048
  6. ACETAMINOPHEN [Concomitant]
     Active Substance: ACETAMINOPHEN
     Indication: Pyrexia
     Route: 048
  7. ACETAMINOPHEN [Concomitant]
     Active Substance: ACETAMINOPHEN
     Indication: Pain
     Route: 065
  8. ACETAMINOPHEN [Concomitant]
     Active Substance: ACETAMINOPHEN
     Indication: Rheumatoid arthritis
     Route: 065
  9. ACETAMINOPHEN AND CODEINE [Concomitant]
     Active Substance: ACETAMINOPHEN\CODEINE PHOSPHATE
     Indication: Product used for unknown indication
     Route: 048
  10. ACETAMINOPHEN\CAFFEINE\DIHYDROCODEINE BITARTRATE [Concomitant]
     Active Substance: ACETAMINOPHEN\CAFFEINE\DIHYDROCODEINE BITARTRATE
     Indication: Crohn^s disease
     Route: 065
  11. ACETAMINOPHEN\CAFFEINE\DIHYDROCODEINE BITARTRATE [Concomitant]
     Active Substance: ACETAMINOPHEN\CAFFEINE\DIHYDROCODEINE BITARTRATE
     Indication: Product used for unknown indication
  12. ACETAMINOPHEN\OXYCODONE HYDROCHLORIDE [Concomitant]
     Active Substance: ACETAMINOPHEN\OXYCODONE HYDROCHLORIDE
     Indication: Product used for unknown indication
     Route: 065
  13. ACETAMINOPHEN\OXYCODONE HYDROCHLORIDE [Concomitant]
     Active Substance: ACETAMINOPHEN\OXYCODONE HYDROCHLORIDE
     Indication: Rheumatoid arthritis
     Route: 065
  14. ACETAMINOPHEN\OXYCODONE HYDROCHLORIDE [Concomitant]
     Active Substance: ACETAMINOPHEN\OXYCODONE HYDROCHLORIDE
     Route: 048
  15. ACETAMINOPHEN\OXYCODONE HYDROCHLORIDE [Concomitant]
     Active Substance: ACETAMINOPHEN\OXYCODONE HYDROCHLORIDE
     Route: 058
  16. ACTEMRA [Concomitant]
     Active Substance: TOCILIZUMAB
     Indication: Rheumatoid arthritis
     Route: 065
  17. ACTEMRA [Concomitant]
     Active Substance: TOCILIZUMAB
     Indication: Product used for unknown indication
     Route: 065
  18. ACTEMRA [Concomitant]
     Active Substance: TOCILIZUMAB
     Indication: Psoriatic arthropathy
     Route: 016
  19. ACTEMRA [Concomitant]
     Active Substance: TOCILIZUMAB
     Route: 058
  20. ACTEMRA [Concomitant]
     Active Substance: TOCILIZUMAB
     Route: 042
  21. ACTEMRA [Concomitant]
     Active Substance: TOCILIZUMAB
     Route: 042
  22. ACTEMRA [Concomitant]
     Active Substance: TOCILIZUMAB
     Route: 042
  23. ACTEMRA [Concomitant]
     Active Substance: TOCILIZUMAB
     Route: 042
  24. ACTEMRA [Concomitant]
     Active Substance: TOCILIZUMAB
     Route: 042
  25. ACTEMRA [Concomitant]
     Active Substance: TOCILIZUMAB
     Route: 058
  26. ACTEMRA [Concomitant]
     Active Substance: TOCILIZUMAB
     Route: 058
  27. ACTEMRA [Concomitant]
     Active Substance: TOCILIZUMAB
     Route: 058
  28. ACTEMRA [Concomitant]
     Active Substance: TOCILIZUMAB
     Dosage: 2912 MILLIGRAM, QWK, 1 EVERY 1 WEEK
     Route: 042
  29. ACTEMRA [Concomitant]
     Active Substance: TOCILIZUMAB
     Route: 065
  30. ACTEMRA [Concomitant]
     Active Substance: TOCILIZUMAB
     Dosage: 752.8 MILLIGRAM, QWK, 1 EVERY 1 WEEK
     Route: 042
  31. ACTEMRA [Concomitant]
     Active Substance: TOCILIZUMAB
     Route: 065
  32. ACTEMRA [Concomitant]
     Active Substance: TOCILIZUMAB
     Route: 048
  33. ACTEMRA [Concomitant]
     Active Substance: TOCILIZUMAB
     Route: 058
  34. ACTEMRA [Concomitant]
     Active Substance: TOCILIZUMAB
     Route: 065
  35. ADALIMUMAB [Concomitant]
     Active Substance: ADALIMUMAB
     Indication: Product used for unknown indication
     Route: 065
  36. ADALIMUMAB [Concomitant]
     Active Substance: ADALIMUMAB
     Indication: Psoriatic arthropathy
     Route: 058
  37. ADALIMUMAB [Concomitant]
     Active Substance: ADALIMUMAB
     Route: 048
  38. ADALIMUMAB [Concomitant]
     Active Substance: ADALIMUMAB
     Route: 058
  39. ADALIMUMAB [Concomitant]
     Active Substance: ADALIMUMAB
     Route: 065
  40. ADALIMUMAB [Concomitant]
     Active Substance: ADALIMUMAB
     Route: 065
  41. ADALIMUMAB [Concomitant]
     Active Substance: ADALIMUMAB
     Route: 042
  42. ALENDRONATE SODIUM [Concomitant]
     Active Substance: ALENDRONATE SODIUM
     Indication: Rheumatoid arthritis
     Route: 016
  43. ALENDRONATE SODIUM [Concomitant]
     Active Substance: ALENDRONATE SODIUM
     Indication: Product used for unknown indication
     Route: 048
  44. ALENDRONATE SODIUM [Concomitant]
     Active Substance: ALENDRONATE SODIUM
     Route: 058
  45. ALENDRONATE SODIUM [Concomitant]
     Active Substance: ALENDRONATE SODIUM
     Route: 048
  46. ALENDRONATE SODIUM [Concomitant]
     Active Substance: ALENDRONATE SODIUM
     Route: 065
  47. ALENDRONATE SODIUM [Concomitant]
     Active Substance: ALENDRONATE SODIUM
     Route: 048
  48. ALENDRONATE SODIUM [Concomitant]
     Active Substance: ALENDRONATE SODIUM
     Route: 058
  49. ALENDRONATE SODIUM [Concomitant]
     Active Substance: ALENDRONATE SODIUM
     Route: 005
  50. ALENDRONATE SODIUM [Concomitant]
     Active Substance: ALENDRONATE SODIUM
     Route: 065
  51. ALENDRONIC ACID [Concomitant]
     Active Substance: ALENDRONIC ACID
     Indication: Rheumatoid arthritis
     Route: 048
  52. ALENDRONIC ACID [Concomitant]
     Active Substance: ALENDRONIC ACID
     Route: 048
  53. ALENDRONIC ACID [Concomitant]
     Active Substance: ALENDRONIC ACID
     Route: 065
  54. ALENDRONIC ACID [Concomitant]
     Active Substance: ALENDRONIC ACID
     Route: 065
  55. ALENDRONIC ACID [Concomitant]
     Active Substance: ALENDRONIC ACID
     Route: 016
  56. PANTOPRAZOLE SODIUM [Concomitant]
     Active Substance: PANTOPRAZOLE SODIUM
     Indication: Product used for unknown indication
     Route: 065
  57. Apo diclo [Concomitant]
     Indication: Rheumatoid arthritis
     Route: 065
  58. Apo diclo [Concomitant]
     Indication: Product used for unknown indication
     Route: 048
  59. PREDNISONE [Concomitant]
     Active Substance: PREDNISONE
     Indication: Rheumatoid arthritis
     Route: 048
  60. PREDNISONE [Concomitant]
     Active Substance: PREDNISONE
     Indication: Product used for unknown indication
     Route: 065
  61. PREDNISONE [Concomitant]
     Active Substance: PREDNISONE
     Indication: Systemic lupus erythematosus
     Route: 048
  62. PREDNISONE [Concomitant]
     Active Substance: PREDNISONE
     Indication: Synovitis
     Route: 065
  63. PREDNISONE [Concomitant]
     Active Substance: PREDNISONE
     Indication: Psoriatic arthropathy
     Route: 048
  64. PREDNISONE [Concomitant]
     Active Substance: PREDNISONE
     Indication: Pemphigus
     Route: 048
  65. PREDNISONE [Concomitant]
     Active Substance: PREDNISONE
     Indication: Inflammation
  66. PREDNISONE [Concomitant]
     Active Substance: PREDNISONE
     Indication: Bursitis
  67. APREMILAST [Concomitant]
     Active Substance: APREMILAST
     Indication: Product used for unknown indication
     Route: 065
  68. APREMILAST [Concomitant]
     Active Substance: APREMILAST
     Route: 048
  69. APREPITANT [Concomitant]
     Active Substance: APREPITANT
     Indication: Rheumatoid arthritis
     Route: 065
  70. APREPITANT [Concomitant]
     Active Substance: APREPITANT
     Indication: Product used for unknown indication
     Route: 058
  71. APREPITANT [Concomitant]
     Active Substance: APREPITANT
     Route: 048
  72. APREPITANT [Concomitant]
     Active Substance: APREPITANT
     Route: 048
  73. APREPITANT [Concomitant]
     Active Substance: APREPITANT
     Route: 042
  74. APREPITANT [Concomitant]
     Active Substance: APREPITANT
     Route: 065
  75. APREPITANT [Concomitant]
     Active Substance: APREPITANT
     Route: 065
  76. ARAVA [Concomitant]
     Active Substance: LEFLUNOMIDE
     Indication: Rheumatoid arthritis
     Route: 065
  77. ARAVA [Concomitant]
     Active Substance: LEFLUNOMIDE
     Indication: Product used for unknown indication
     Route: 065
  78. ARAVA [Concomitant]
     Active Substance: LEFLUNOMIDE
     Route: 005
  79. ARAVA [Concomitant]
     Active Substance: LEFLUNOMIDE
     Route: 065
  80. ARAVA [Concomitant]
     Active Substance: LEFLUNOMIDE
     Route: 048
  81. ARAVA [Concomitant]
     Active Substance: LEFLUNOMIDE
     Route: 048
  82. ASACOL [Concomitant]
     Active Substance: MESALAMINE
     Indication: Crohn^s disease
     Route: 065
  83. ASACOL [Concomitant]
     Active Substance: MESALAMINE
     Indication: Product used for unknown indication
  84. ATIVAN [Concomitant]
     Active Substance: LORAZEPAM
     Indication: Rheumatoid arthritis
     Route: 065
  85. AZATHIOPRINE [Concomitant]
     Active Substance: AZATHIOPRINE
     Indication: Rheumatoid arthritis
     Route: 058
  86. CAFFEINE CITRATE [Concomitant]
     Active Substance: CAFFEINE CITRATE
     Indication: Product used for unknown indication
     Route: 048
  87. CALCIUM GLUBIONATE [Concomitant]
     Active Substance: CALCIUM GLUBIONATE
     Indication: Product used for unknown indication
     Route: 065
  88. CALCIUM GLUBIONATE [Concomitant]
     Active Substance: CALCIUM GLUBIONATE
     Route: 016
  89. CALCIUM GLUCONATE [Concomitant]
     Active Substance: CALCIUM GLUCONATE
     Indication: Product used for unknown indication
     Route: 065
  90. CALCIUM LACTATE [Concomitant]
     Active Substance: CALCIUM LACTATE
     Indication: Product used for unknown indication
     Route: 065
  91. DIETARY SUPPLEMENT\MINERALS\VITAMINS [Concomitant]
     Active Substance: DIETARY SUPPLEMENT\MINERALS\VITAMINS
     Indication: Rheumatoid arthritis
     Route: 058
  92. CELECOXIB [Concomitant]
     Active Substance: CELECOXIB
     Indication: Rheumatoid arthritis
     Route: 048
  93. CELECOXIB [Concomitant]
     Active Substance: CELECOXIB
     Indication: Product used for unknown indication
     Route: 048
  94. CELECOXIB [Concomitant]
     Active Substance: CELECOXIB
     Route: 048
  95. CELECOXIB [Concomitant]
     Active Substance: CELECOXIB
     Route: 048
  96. CELECOXIB [Concomitant]
     Active Substance: CELECOXIB
     Route: 048
  97. CELECOXIB [Concomitant]
     Active Substance: CELECOXIB
     Route: 065
  98. CELECOXIB [Concomitant]
     Active Substance: CELECOXIB
     Indication: Product used for unknown indication
     Route: 065
  99. CELECOXIB [Concomitant]
     Active Substance: CELECOXIB
     Indication: Off label use
     Route: 065
  100. CELECOXIB [Concomitant]
     Active Substance: CELECOXIB
     Indication: Rheumatoid arthritis
     Route: 048
  101. CELECOXIB [Concomitant]
     Active Substance: CELECOXIB
     Route: 048
  102. CELECOXIB [Concomitant]
     Active Substance: CELECOXIB
     Route: 048
  103. CELECOXIB [Concomitant]
     Active Substance: CELECOXIB
     Route: 048
  104. CELECOXIB [Concomitant]
     Active Substance: CELECOXIB
     Route: 048
  105. CHLORAPREP [Concomitant]
     Active Substance: CHLORHEXIDINE GLUCONATE\ISOPROPYL ALCOHOL
     Indication: Rheumatoid arthritis
     Route: 065
  106. CHLORAPREP [Concomitant]
     Active Substance: CHLORHEXIDINE GLUCONATE\ISOPROPYL ALCOHOL
     Indication: Product used for unknown indication
     Route: 065
  107. CHLORAPREP [Concomitant]
     Active Substance: CHLORHEXIDINE GLUCONATE\ISOPROPYL ALCOHOL
     Route: 061
  108. CHLORHEXIDINE GLUCONATE [Concomitant]
     Active Substance: CHLORHEXIDINE GLUCONATE
     Indication: Rheumatoid arthritis
     Route: 058
  109. CHLORHEXIDINE GLUCONATE [Concomitant]
     Active Substance: CHLORHEXIDINE GLUCONATE
     Indication: Product used for unknown indication
     Route: 065
  110. CHLORHEXIDINE GLUCONATE [Concomitant]
     Active Substance: CHLORHEXIDINE GLUCONATE
     Route: 048
  111. CHLORHEXIDINE GLUCONATE [Concomitant]
     Active Substance: CHLORHEXIDINE GLUCONATE
     Route: 002
  112. CIMZIA [Concomitant]
     Active Substance: CERTOLIZUMAB PEGOL
     Indication: Rheumatoid arthritis
     Route: 058
  113. CIMZIA [Concomitant]
     Active Substance: CERTOLIZUMAB PEGOL
     Indication: Psoriasis
     Route: 065
  114. CIMZIA [Concomitant]
     Active Substance: CERTOLIZUMAB PEGOL
     Indication: Product used for unknown indication
     Route: 005
  115. CIMZIA [Concomitant]
     Active Substance: CERTOLIZUMAB PEGOL
     Route: 058
  116. CIMZIA [Concomitant]
     Active Substance: CERTOLIZUMAB PEGOL
     Route: 058
  117. CIMZIA [Concomitant]
     Active Substance: CERTOLIZUMAB PEGOL
     Route: 065
  118. CIMZIA [Concomitant]
     Active Substance: CERTOLIZUMAB PEGOL
     Route: 058
  119. CIMZIA [Concomitant]
     Active Substance: CERTOLIZUMAB PEGOL
     Route: 065
  120. CIMZIA [Concomitant]
     Active Substance: CERTOLIZUMAB PEGOL
     Route: 065
  121. CODEINE [Concomitant]
     Active Substance: CODEINE
     Indication: Rheumatoid arthritis
     Route: 065
  122. CODEINE [Concomitant]
     Active Substance: CODEINE
     Indication: Product used for unknown indication
  123. BORAGE OIL [Concomitant]
     Active Substance: BORAGE OIL
     Indication: Product used for unknown indication
     Route: 065
  124. CODEINE SULFATE [Concomitant]
     Active Substance: CODEINE SULFATE
     Indication: Rheumatoid arthritis
     Route: 065
  125. CODEINE SULFATE [Concomitant]
     Active Substance: CODEINE SULFATE
     Indication: Product used for unknown indication
  126. COSENTYX [Concomitant]
     Active Substance: SECUKINUMAB
     Indication: Rheumatoid arthritis
     Route: 005
  127. COSENTYX [Concomitant]
     Active Substance: SECUKINUMAB
     Indication: Psoriatic arthropathy
     Route: 065
  128. COSENTYX [Concomitant]
     Active Substance: SECUKINUMAB
     Indication: Product used for unknown indication
     Route: 048
  129. COSENTYX [Concomitant]
     Active Substance: SECUKINUMAB
     Route: 042
  130. DESOXIMETASONE [Concomitant]
     Active Substance: DESOXIMETASONE
     Indication: Rheumatoid arthritis
     Route: 065
  131. DESOXIMETASONE [Concomitant]
     Active Substance: DESOXIMETASONE
     Indication: Product used for unknown indication
     Route: 067
  132. DESOXIMETASONE [Concomitant]
     Active Substance: DESOXIMETASONE
     Route: 065
  133. DESOXIMETASONE [Concomitant]
     Active Substance: DESOXIMETASONE
     Route: 048
  134. DESOXIMETASONE [Concomitant]
     Active Substance: DESOXIMETASONE
     Route: 058
  135. DESOXIMETASONE [Concomitant]
     Active Substance: DESOXIMETASONE
     Route: 003
  136. DESOXIMETASONE [Concomitant]
     Active Substance: DESOXIMETASONE
     Route: 016
  137. DESOXIMETASONE [Concomitant]
     Active Substance: DESOXIMETASONE
     Route: 048
  138. DESOXIMETASONE [Concomitant]
     Active Substance: DESOXIMETASONE
     Route: 065
  139. DESOXIMETASONE [Concomitant]
     Active Substance: DESOXIMETASONE
     Route: 065
  140. DESOXIMETASONE [Concomitant]
     Active Substance: DESOXIMETASONE
     Dosage: 25 MILLIGRAM, QWK, 1 EVERY 1 WEEK
     Route: 048
  141. DESOXIMETASONE [Concomitant]
     Active Substance: DESOXIMETASONE
     Route: 061
  142. DESOXIMETASONE [Concomitant]
     Active Substance: DESOXIMETASONE
     Route: 042
  143. DICLOFENAC SODIUM [Concomitant]
     Active Substance: DICLOFENAC SODIUM
     Indication: Rheumatoid arthritis
     Route: 065
  144. DICLOFENAC SODIUM [Concomitant]
     Active Substance: DICLOFENAC SODIUM
     Indication: Product used for unknown indication
     Route: 065
  145. DICLOFENAC SODIUM [Concomitant]
     Active Substance: DICLOFENAC SODIUM
     Route: 047
  146. DICLOFENAC SODIUM [Concomitant]
     Active Substance: DICLOFENAC SODIUM
     Route: 058
  147. DICLOFENAC POTASSIUM [Concomitant]
     Active Substance: DICLOFENAC POTASSIUM
     Indication: Rheumatoid arthritis
     Route: 065
  148. DICLOFENAC POTASSIUM [Concomitant]
     Active Substance: DICLOFENAC POTASSIUM
     Indication: Product used for unknown indication
     Route: 065
  149. DICLOFENAC POTASSIUM [Concomitant]
     Active Substance: DICLOFENAC POTASSIUM
     Route: 048
  150. DICLOFENAC POTASSIUM [Concomitant]
     Active Substance: DICLOFENAC POTASSIUM
     Route: 058
  151. DICLOFENAC POTASSIUM [Concomitant]
     Active Substance: DICLOFENAC POTASSIUM
     Indication: Product used for unknown indication
     Route: 058
  152. DICLOFENAC POTASSIUM [Concomitant]
     Active Substance: DICLOFENAC POTASSIUM
     Route: 048
  153. DIPHENHYDRAMINE HYDROCHLORIDE [Concomitant]
     Active Substance: DIPHENHYDRAMINE HYDROCHLORIDE
     Indication: Product used for unknown indication
     Route: 065
  154. DOXYCYCLINE HYCLATE [Concomitant]
     Active Substance: DOXYCYCLINE HYCLATE
     Indication: Rheumatoid arthritis
     Route: 065
  155. DOXYCYCLINE HYCLATE [Concomitant]
     Active Substance: DOXYCYCLINE HYCLATE
     Route: 058
  156. CALCIUM CARBONATE [Concomitant]
     Active Substance: CALCIUM CARBONATE
     Indication: Product used for unknown indication
     Route: 065
  157. ENBREL [Concomitant]
     Active Substance: ETANERCEPT
     Indication: Rheumatoid arthritis
     Route: 065
  158. ENBREL [Concomitant]
     Active Substance: ETANERCEPT
     Indication: Psoriatic arthropathy
     Route: 058
  159. ENBREL [Concomitant]
     Active Substance: ETANERCEPT
     Indication: Product used for unknown indication
     Route: 058
  160. ENBREL [Concomitant]
     Active Substance: ETANERCEPT
     Dosage: 50 MILLIGRAM, QWK, 1 EVERY 1 WEEKS
     Route: 058
  161. ENBREL [Concomitant]
     Active Substance: ETANERCEPT
     Dosage: 20 MILLIGRAM, QWK, 1 EVERY 1 WEEKS
     Route: 058
  162. ENBREL [Concomitant]
     Active Substance: ETANERCEPT
     Route: 058
  163. ENBREL [Concomitant]
     Active Substance: ETANERCEPT
     Route: 058
  164. ERELZI [Concomitant]
     Active Substance: ETANERCEPT-SZZS
     Indication: Rheumatoid arthritis
     Route: 065
  165. ERELZI [Concomitant]
     Active Substance: ETANERCEPT-SZZS
     Indication: Product used for unknown indication
     Route: 058
  166. ERELZI [Concomitant]
     Active Substance: ETANERCEPT-SZZS
     Route: 058
  167. ERELZI [Concomitant]
     Active Substance: ETANERCEPT-SZZS
     Route: 065
  168. ERELZI [Concomitant]
     Active Substance: ETANERCEPT-SZZS
     Dosage: 50 MILLIGRAM, QWK, 1 EVERY 1 WEEKS
     Route: 065
  169. ERGOCALCIFEROL [Concomitant]
     Active Substance: ERGOCALCIFEROL
     Indication: Rheumatoid arthritis
     Route: 065
  170. ERGOCALCIFEROL [Concomitant]
     Active Substance: ERGOCALCIFEROL
     Route: 065
  171. ERYTHROMYCIN [Concomitant]
     Active Substance: ERYTHROMYCIN
     Indication: Product used for unknown indication
     Route: 065
  172. FLUMETHASONE PIVALATE [Concomitant]
     Active Substance: FLUMETHASONE PIVALATE
     Indication: Rheumatoid arthritis
     Route: 065
  173. FLUMETHASONE PIVALATE [Concomitant]
     Active Substance: FLUMETHASONE PIVALATE
     Indication: Product used for unknown indication
     Route: 065
  174. FLUMETHASONE PIVALATE [Concomitant]
     Active Substance: FLUMETHASONE PIVALATE
     Route: 058
  175. FLUMETHASONE PIVALATE [Concomitant]
     Active Substance: FLUMETHASONE PIVALATE
     Indication: Rheumatoid arthritis
     Route: 065
  176. FLUMETHASONE PIVALATE [Concomitant]
     Active Substance: FLUMETHASONE PIVALATE
     Route: 003
  177. FOLIC ACID [Concomitant]
     Active Substance: FOLIC ACID
     Indication: Rheumatoid arthritis
     Route: 065
  178. FOLIC ACID [Concomitant]
     Active Substance: FOLIC ACID
     Indication: Product used for unknown indication
     Route: 065
  179. FOLIC ACID [Concomitant]
     Active Substance: FOLIC ACID
     Route: 065
  180. FOLIC ACID [Concomitant]
     Active Substance: FOLIC ACID
     Route: 065
  181. FOLIC ACID [Concomitant]
     Active Substance: FOLIC ACID
     Route: 065
  182. FOLIC ACID [Concomitant]
     Active Substance: FOLIC ACID
     Route: 058
  183. FOLIC ACID [Concomitant]
     Active Substance: FOLIC ACID
     Route: 065
  184. FOLIC ACID [Concomitant]
     Active Substance: FOLIC ACID
     Route: 016
  185. FOLIC ACID [Concomitant]
     Active Substance: FOLIC ACID
     Route: 065
  186. FOLIC ACID [Concomitant]
     Active Substance: FOLIC ACID
     Route: 065
  187. FOLIC ACID [Concomitant]
     Active Substance: FOLIC ACID
     Route: 065
  188. FOLIC ACID [Concomitant]
     Active Substance: FOLIC ACID
     Route: 048
  189. FOLIC ACID [Concomitant]
     Active Substance: FOLIC ACID
     Route: 048
  190. FOLIC ACID [Concomitant]
     Active Substance: FOLIC ACID
     Route: 048
  191. FOLIC ACID [Concomitant]
     Active Substance: FOLIC ACID
     Route: 048
  192. FOLIC ACID [Concomitant]
     Active Substance: FOLIC ACID
     Route: 048
  193. FOLIC ACID [Concomitant]
     Active Substance: FOLIC ACID
     Route: 048
  194. FOSAMAX [Concomitant]
     Active Substance: ALENDRONATE SODIUM
     Indication: Rheumatoid arthritis
     Route: 048
  195. FOSAMAX [Concomitant]
     Active Substance: ALENDRONATE SODIUM
     Indication: Product used for unknown indication
     Route: 065
  196. FOSAMAX [Concomitant]
     Active Substance: ALENDRONATE SODIUM
     Route: 058
  197. FOSAMAX [Concomitant]
     Active Substance: ALENDRONATE SODIUM
     Route: 016
  198. FOSAMAX [Concomitant]
     Active Substance: ALENDRONATE SODIUM
     Route: 065
  199. FOSAMAX [Concomitant]
     Active Substance: ALENDRONATE SODIUM
     Route: 005
  200. FOSAMAX [Concomitant]
     Active Substance: ALENDRONATE SODIUM
     Route: 048
  201. GLUCOSAMINE [Concomitant]
     Active Substance: GLUCOSAMINE
     Indication: Rheumatoid arthritis
     Route: 048
  202. HUMIRA [Concomitant]
     Active Substance: ADALIMUMAB
     Indication: Rheumatoid arthritis
     Route: 058
  203. HUMIRA [Concomitant]
     Active Substance: ADALIMUMAB
     Indication: Product used for unknown indication
     Route: 065
  204. HUMIRA [Concomitant]
     Active Substance: ADALIMUMAB
     Indication: Psoriatic arthropathy
     Route: 058
  205. HUMIRA [Concomitant]
     Active Substance: ADALIMUMAB
     Route: 058
  206. HUMIRA [Concomitant]
     Active Substance: ADALIMUMAB
     Route: 058
  207. HUMIRA [Concomitant]
     Active Substance: ADALIMUMAB
     Route: 058
  208. HYALURONIDASE [Concomitant]
     Active Substance: HYALURONIDASE
     Indication: Product used for unknown indication
     Route: 065
  209. HYALURONIDASE [Concomitant]
     Active Substance: HYALURONIDASE
     Route: 065
  210. HYALURONIDASE [Concomitant]
     Active Substance: HYALURONIDASE
     Route: 058
  211. HYDROCORTISONE [Concomitant]
     Active Substance: HYDROCORTISONE
     Indication: Rheumatoid arthritis
     Route: 058
  212. HYDROCORTISONE [Concomitant]
     Active Substance: HYDROCORTISONE
     Indication: Product used for unknown indication
     Route: 065
  213. HYDROCORTISONE [Concomitant]
     Active Substance: HYDROCORTISONE
     Route: 048
  214. HYDROCORTISONE [Concomitant]
     Active Substance: HYDROCORTISONE
     Route: 048
  215. HYDROCORTISONE [Concomitant]
     Active Substance: HYDROCORTISONE
     Route: 003
  216. HYDROCORTISONE [Concomitant]
     Active Substance: HYDROCORTISONE
     Route: 058
  217. HYDROCORTISONE [Concomitant]
     Active Substance: HYDROCORTISONE
     Route: 065
  218. HYDROCORTISONE [Concomitant]
     Active Substance: HYDROCORTISONE
  219. HYDROCORTISONE BUTYRATE [Concomitant]
     Active Substance: HYDROCORTISONE BUTYRATE
     Indication: Rheumatoid arthritis
     Route: 065
  220. HYDROCORTISONE BUTYRATE [Concomitant]
     Active Substance: HYDROCORTISONE BUTYRATE
     Route: 003
  221. HYDROCORTISONE SODIUM SUCCINATE [Concomitant]
     Active Substance: HYDROCORTISONE SODIUM SUCCINATE
     Indication: Rheumatoid arthritis
     Route: 065
  222. HYDROCORTISONE SODIUM SUCCINATE [Concomitant]
     Active Substance: HYDROCORTISONE SODIUM SUCCINATE
     Route: 065
  223. HYDROCORTISONE SODIUM SUCCINATE [Concomitant]
     Active Substance: HYDROCORTISONE SODIUM SUCCINATE
     Route: 003
  224. HYDROCORTISONE SODIUM SUCCINATE [Concomitant]
     Active Substance: HYDROCORTISONE SODIUM SUCCINATE
     Route: 058
  225. HYDROCORTISONE SODIUM SUCCINATE [Concomitant]
     Active Substance: HYDROCORTISONE SODIUM SUCCINATE
     Route: 065
  226. HYDROCORTISONE SODIUM SUCCINATE [Concomitant]
     Active Substance: HYDROCORTISONE SODIUM SUCCINATE
     Route: 048
  227. HYDROXYCHLOROQUINE SULFATE [Concomitant]
     Active Substance: HYDROXYCHLOROQUINE SULFATE
     Indication: Rheumatoid arthritis
     Route: 005
  228. HYDROXYCHLOROQUINE SULFATE [Concomitant]
     Active Substance: HYDROXYCHLOROQUINE SULFATE
     Indication: Systemic lupus erythematosus
     Route: 048
  229. HYDROXYCHLOROQUINE SULFATE [Concomitant]
     Active Substance: HYDROXYCHLOROQUINE SULFATE
     Route: 065
  230. HYDROXYCHLOROQUINE SULFATE [Concomitant]
     Active Substance: HYDROXYCHLOROQUINE SULFATE
     Route: 048
  231. HYDROXYCHLOROQUINE SULFATE [Concomitant]
     Active Substance: HYDROXYCHLOROQUINE SULFATE
     Route: 048
  232. HYDROXYCHLOROQUINE SULFATE [Concomitant]
     Active Substance: HYDROXYCHLOROQUINE SULFATE
     Route: 016
  233. HYDROXYCHLOROQUINE SULFATE [Concomitant]
     Active Substance: HYDROXYCHLOROQUINE SULFATE
     Route: 048
  234. HYDROXYCHLOROQUINE SULFATE [Concomitant]
     Active Substance: HYDROXYCHLOROQUINE SULFATE
     Route: 048
  235. HYDROXYCHLOROQUINE SULFATE [Concomitant]
     Active Substance: HYDROXYCHLOROQUINE SULFATE
     Route: 065
  236. HYDROXYCHLOROQUINE SULFATE [Concomitant]
     Active Substance: HYDROXYCHLOROQUINE SULFATE
     Route: 058
  237. HYDROXYCHLOROQUINE SULFATE [Concomitant]
     Active Substance: HYDROXYCHLOROQUINE SULFATE
     Route: 058
  238. HYDROXYCHLOROQUINE SULFATE [Concomitant]
     Active Substance: HYDROXYCHLOROQUINE SULFATE
     Route: 065
  239. HYDROXYCHLOROQUINE SULFATE [Concomitant]
     Active Substance: HYDROXYCHLOROQUINE SULFATE
     Indication: Rheumatoid arthritis
     Route: 065
  240. HYDROXYCHLOROQUINE SULFATE [Concomitant]
     Active Substance: HYDROXYCHLOROQUINE SULFATE
     Route: 065
  241. HYDROXYCHLOROQUINE SULFATE [Concomitant]
     Active Substance: HYDROXYCHLOROQUINE SULFATE
     Route: 048
  242. HYDROXYCHLOROQUINE SULFATE [Concomitant]
     Active Substance: HYDROXYCHLOROQUINE SULFATE
     Route: 048
  243. HYDROXYCHLOROQUINE SULFATE [Concomitant]
     Active Substance: HYDROXYCHLOROQUINE SULFATE
     Route: 048
  244. HYDROXYCHLOROQUINE SULFATE [Concomitant]
     Active Substance: HYDROXYCHLOROQUINE SULFATE
     Route: 048
  245. HYDROXYCHLOROQUINE SULFATE [Concomitant]
     Active Substance: HYDROXYCHLOROQUINE SULFATE
     Route: 016
  246. HYDROXYCHLOROQUINE SULFATE [Concomitant]
     Active Substance: HYDROXYCHLOROQUINE SULFATE
     Route: 048
  247. HYDROXYCHLOROQUINE SULFATE [Concomitant]
     Active Substance: HYDROXYCHLOROQUINE SULFATE
     Route: 065
  248. INFLIXIMAB [Concomitant]
     Active Substance: INFLIXIMAB
     Indication: Product used for unknown indication
     Route: 042
  249. INFLIXIMAB [Concomitant]
     Active Substance: INFLIXIMAB
     Indication: Rheumatoid arthritis
     Route: 065
  250. INFLIXIMAB [Concomitant]
     Active Substance: INFLIXIMAB
     Route: 065
  251. INFLIXIMAB [Concomitant]
     Active Substance: INFLIXIMAB
     Route: 042
  252. INFLIXIMAB [Concomitant]
     Active Substance: INFLIXIMAB
     Indication: Rheumatoid arthritis
     Route: 065
  253. INFLIXIMAB [Concomitant]
     Active Substance: INFLIXIMAB
     Route: 042
  254. INFLIXIMAB [Concomitant]
     Active Substance: INFLIXIMAB
     Route: 042
  255. ISOPROPYL ALCOHOL [Concomitant]
     Active Substance: ISOPROPYL ALCOHOL
     Indication: Rheumatoid arthritis
     Route: 061
  256. ISOPROPYL ALCOHOL [Concomitant]
     Active Substance: ISOPROPYL ALCOHOL
     Indication: Product used for unknown indication
     Route: 065
  257. ISOPROPYL ALCOHOL [Concomitant]
     Active Substance: ISOPROPYL ALCOHOL
     Route: 061
  258. ISOPROPYL ALCOHOL [Concomitant]
     Active Substance: ISOPROPYL ALCOHOL
     Route: 058
  259. LANSOPRAZOLE [Concomitant]
     Active Substance: LANSOPRAZOLE
     Indication: Rheumatoid arthritis
     Route: 065
  260. LANSOPRAZOLE [Concomitant]
     Active Substance: LANSOPRAZOLE
     Indication: Product used for unknown indication
  261. LANSOPRAZOLE [Concomitant]
     Active Substance: LANSOPRAZOLE
     Indication: Rheumatoid arthritis
     Route: 048
  262. LANSOPRAZOLE [Concomitant]
     Active Substance: LANSOPRAZOLE
     Route: 048
  263. LEFLUNOMIDE [Concomitant]
     Active Substance: LEFLUNOMIDE
     Indication: Rheumatoid arthritis
     Route: 065
  264. LEFLUNOMIDE [Concomitant]
     Active Substance: LEFLUNOMIDE
     Indication: Product used for unknown indication
     Route: 048
  265. LEFLUNOMIDE [Concomitant]
     Active Substance: LEFLUNOMIDE
     Route: 048
  266. LEFLUNOMIDE [Concomitant]
     Active Substance: LEFLUNOMIDE
     Indication: Rheumatoid arthritis
     Route: 048
  267. LEFLUNOMIDE [Concomitant]
     Active Substance: LEFLUNOMIDE
     Route: 048
  268. LISINOPRIL [Concomitant]
     Active Substance: LISINOPRIL
     Indication: Product used for unknown indication
     Route: 048
  269. LISINOPRIL [Concomitant]
     Active Substance: LISINOPRIL
     Indication: Product used for unknown indication
     Route: 048
  270. CLIOQUINOL\FLUMETHASONE [Concomitant]
     Active Substance: CLIOQUINOL\FLUMETHASONE
     Indication: Product used for unknown indication
     Route: 065
  271. LORAZEPAM [Concomitant]
     Active Substance: LORAZEPAM
     Indication: Product used for unknown indication
     Route: 065
  272. LORAZEPAM [Concomitant]
     Active Substance: LORAZEPAM
     Indication: Rheumatoid arthritis
     Route: 065
  273. MAGNESIUM GLUCONATE [Concomitant]
     Active Substance: MAGNESIUM GLUCONATE
     Indication: Product used for unknown indication
     Route: 065
  274. MAGNESIUM GLUCONATE [Concomitant]
     Active Substance: MAGNESIUM GLUCONATE
     Route: 048
  275. MAGNESIUM SULFATE [Concomitant]
     Active Substance: MAGNESIUM SULFATE
     Indication: Product used for unknown indication
     Route: 048
  276. MAGNESIUM [Concomitant]
     Active Substance: MAGNESIUM
     Indication: Product used for unknown indication
     Route: 065
  277. MAGNESIUM [Concomitant]
     Active Substance: MAGNESIUM
     Route: 048
  278. LYRICA [Concomitant]
     Active Substance: PREGABALIN
     Indication: Product used for unknown indication
     Route: 065
  279. LYRICA [Concomitant]
     Active Substance: PREGABALIN
     Route: 048
  280. MELOXICAM [Concomitant]
     Active Substance: MELOXICAM
     Indication: Product used for unknown indication
     Route: 065
  281. MELOXICAM [Concomitant]
     Active Substance: MELOXICAM
     Route: 048
  282. MESALAMINE [Concomitant]
     Active Substance: MESALAMINE
     Indication: Product used for unknown indication
     Route: 048
  283. MESALAMINE [Concomitant]
     Active Substance: MESALAMINE
     Indication: Crohn^s disease
     Route: 065
  284. METHOTREXATE [Concomitant]
     Active Substance: METHOTREXATE
     Indication: Rheumatoid arthritis
     Route: 048
  285. METHOTREXATE [Concomitant]
     Active Substance: METHOTREXATE
     Indication: Product used for unknown indication
     Route: 065
  286. METHOTREXATE [Concomitant]
     Active Substance: METHOTREXATE
     Route: 065
  287. METHOTREXATE [Concomitant]
     Active Substance: METHOTREXATE
     Route: 016
  288. METHOTREXATE [Concomitant]
     Active Substance: METHOTREXATE
     Route: 048
  289. METHOTREXATE [Concomitant]
     Active Substance: METHOTREXATE
     Route: 048
  290. METHOTREXATE [Concomitant]
     Active Substance: METHOTREXATE
     Route: 048
  291. METHOTREXATE [Concomitant]
     Active Substance: METHOTREXATE
     Route: 048
  292. METHOTREXATE [Concomitant]
     Active Substance: METHOTREXATE
     Route: 058
  293. METHOTREXATE [Concomitant]
     Active Substance: METHOTREXATE
     Dosage: 25 MILLIGRAM, QWK, 1 EVERY 1 WEEK
     Route: 058
  294. METHOTREXATE [Concomitant]
     Active Substance: METHOTREXATE
     Route: 013
  295. METHOTREXATE [Concomitant]
     Active Substance: METHOTREXATE
     Route: 048
  296. METHOTREXATE [Concomitant]
     Active Substance: METHOTREXATE
     Dosage: 20 MILLIGRAM, QWK, 1 EVERY 1 WEEKS
     Route: 048
  297. METHOTREXATE [Concomitant]
     Active Substance: METHOTREXATE
     Route: 065
  298. METHOTREXATE [Concomitant]
     Active Substance: METHOTREXATE
     Route: 048
  299. METHOTREXATE [Concomitant]
     Active Substance: METHOTREXATE
     Route: 065
  300. METHOTREXATE [Concomitant]
     Active Substance: METHOTREXATE
     Route: 048
  301. METHOTREXATE [Concomitant]
     Active Substance: METHOTREXATE
     Indication: Rheumatoid arthritis
     Route: 048
  302. METHOTREXATE [Concomitant]
     Active Substance: METHOTREXATE
     Dosage: 25 MILLIGRAM, QWK, 1 EVERY 1 WEEK
     Route: 048
  303. METHOTREXATE [Concomitant]
     Active Substance: METHOTREXATE
     Route: 048
  304. METHOTREXATE [Concomitant]
     Active Substance: METHOTREXATE
     Route: 048
  305. METHOTREXATE [Concomitant]
     Active Substance: METHOTREXATE
     Route: 048
  306. METHOTREXATE [Concomitant]
     Active Substance: METHOTREXATE
     Route: 048
  307. METHOTREXATE [Concomitant]
     Active Substance: METHOTREXATE
     Dosage: 20 MILLIGRAM, QWK, 1 EVERY 1 WEEKS
     Route: 048
  308. METHOTREXATE [Concomitant]
     Active Substance: METHOTREXATE
     Dosage: 2 MILLIGRAM, QWK, 1 EVERY 1 WEEKS
     Route: 048
  309. METHOTREXATE [Concomitant]
     Active Substance: METHOTREXATE
     Route: 048
  310. METHOTREXATE [Concomitant]
     Active Substance: METHOTREXATE
     Route: 048
  311. METHOTREXATE [Concomitant]
     Active Substance: METHOTREXATE
     Route: 048
  312. METHOTREXATE [Concomitant]
     Active Substance: METHOTREXATE
     Dosage: 20 MILLIGRAM, QWK, 1 EVERY 1 WEEKS
     Route: 048
  313. METHOTREXATE [Concomitant]
     Active Substance: METHOTREXATE
     Route: 048
  314. METHOTREXATE [Concomitant]
     Active Substance: METHOTREXATE
     Route: 048
  315. METHOTREXATE [Concomitant]
     Active Substance: METHOTREXATE
     Dosage: 20 MILLIGRAM, QWK, 1 EVERY 1 WEEKS
     Route: 048
  316. MORPHINE [Concomitant]
     Active Substance: MORPHINE
     Indication: Rheumatoid arthritis
     Route: 048
  317. MORPHINE SULFATE [Concomitant]
     Active Substance: MORPHINE SULFATE
     Indication: Rheumatoid arthritis
     Route: 048
  318. MYCOPHENOLATE MOFETIL [Concomitant]
     Active Substance: MYCOPHENOLATE MOFETIL
     Indication: Rheumatoid arthritis
     Route: 065
  319. NAPROXEN SODIUM [Concomitant]
     Active Substance: NAPROXEN SODIUM
     Indication: Product used for unknown indication
     Route: 065
  320. NAPROXEN SODIUM [Concomitant]
     Active Substance: NAPROXEN SODIUM
     Indication: Rheumatoid arthritis
     Route: 065
  321. NAPROXEN SODIUM [Concomitant]
     Active Substance: NAPROXEN SODIUM
     Route: 065
  322. ORENCIA [Concomitant]
     Active Substance: ABATACEPT
     Indication: Rheumatoid arthritis
     Route: 065
  323. ORENCIA [Concomitant]
     Active Substance: ABATACEPT
     Indication: Product used for unknown indication
  324. ORENCIA [Concomitant]
     Active Substance: ABATACEPT
     Indication: Rheumatoid arthritis
     Route: 065
  325. ORENCIA [Concomitant]
     Active Substance: ABATACEPT
     Indication: Product used for unknown indication
     Route: 042
  326. ORENCIA [Concomitant]
     Active Substance: ABATACEPT
     Route: 048
  327. ORENCIA [Concomitant]
     Active Substance: ABATACEPT
     Route: 065
  328. ORENCIA [Concomitant]
     Active Substance: ABATACEPT
     Route: 058
  329. ORENCIA [Concomitant]
     Active Substance: ABATACEPT
     Dosage: 125 MILLIGRAM, QWK, 1 EVERY 1 WEEK
     Route: 058
  330. ORENCIA [Concomitant]
     Active Substance: ABATACEPT
     Route: 058
  331. ORENCIA [Concomitant]
     Active Substance: ABATACEPT
     Dosage: 120 MILLIGRAM, QWK, 1 EVERY 1 WEEK
     Route: 058
  332. ORENCIA [Concomitant]
     Active Substance: ABATACEPT
     Route: 065
  333. ORENCIA [Concomitant]
     Active Substance: ABATACEPT
     Route: 058
  334. ORENCIA [Concomitant]
     Active Substance: ABATACEPT
     Route: 058
  335. PANTOPRAZOLE SODIUM [Concomitant]
     Active Substance: PANTOPRAZOLE SODIUM
     Indication: Product used for unknown indication
     Route: 065
  336. PARA-AMINOSALICYLIC ACID [Concomitant]
     Active Substance: AMINOSALICYLIC ACID
     Indication: Product used for unknown indication
     Route: 065
  337. PHTHALYLSULFATHIAZOLE [Concomitant]
     Active Substance: PHTHALYLSULFATHIAZOLE
     Indication: Product used for unknown indication
     Route: 065
  338. PHTHALYLSULFATHIAZOLE [Concomitant]
     Active Substance: PHTHALYLSULFATHIAZOLE
     Indication: Rheumatoid arthritis
     Route: 016
  339. PHTHALYLSULFATHIAZOLE [Concomitant]
     Active Substance: PHTHALYLSULFATHIAZOLE
     Route: 048
  340. PHTHALYLSULFATHIAZOLE [Concomitant]
     Active Substance: PHTHALYLSULFATHIAZOLE
     Route: 048
  341. PHTHALYLSULFATHIAZOLE [Concomitant]
     Active Substance: PHTHALYLSULFATHIAZOLE
     Route: 048
  342. PHTHALYLSULFATHIAZOLE [Concomitant]
     Active Substance: PHTHALYLSULFATHIAZOLE
     Route: 065
  343. PHTHALYLSULFATHIAZOLE [Concomitant]
     Active Substance: PHTHALYLSULFATHIAZOLE
     Route: 016
  344. PHTHALYLSULFATHIAZOLE [Concomitant]
     Active Substance: PHTHALYLSULFATHIAZOLE
     Route: 048
  345. PHTHALYLSULFATHIAZOLE [Concomitant]
     Active Substance: PHTHALYLSULFATHIAZOLE
     Route: 065
  346. PHTHALYLSULFATHIAZOLE [Concomitant]
     Active Substance: PHTHALYLSULFATHIAZOLE
     Route: 048
  347. PHTHALYLSULFATHIAZOLE [Concomitant]
     Active Substance: PHTHALYLSULFATHIAZOLE
     Route: 042
  348. PHTHALYLSULFATHIAZOLE [Concomitant]
     Active Substance: PHTHALYLSULFATHIAZOLE
     Route: 048
  349. PHTHALYLSULFATHIAZOLE [Concomitant]
     Active Substance: PHTHALYLSULFATHIAZOLE
     Route: 048
  350. PIROXICAM [Concomitant]
     Active Substance: PIROXICAM
     Indication: Product used for unknown indication
  351. PREDNISONE [Concomitant]
     Active Substance: PREDNISONE
     Indication: Product used for unknown indication
     Route: 065
  352. PREDNISONE [Concomitant]
     Active Substance: PREDNISONE
     Indication: Rheumatoid arthritis
     Route: 048
  353. PREDNISONE [Concomitant]
     Active Substance: PREDNISONE
     Indication: Psoriatic arthropathy
     Route: 065
  354. PREDNISONE [Concomitant]
     Active Substance: PREDNISONE
     Indication: Condition aggravated
     Route: 065
  355. PREDNISONE [Concomitant]
     Active Substance: PREDNISONE
     Route: 065
  356. PREDNISONE [Concomitant]
     Active Substance: PREDNISONE
     Route: 048
  357. PREDNISONE [Concomitant]
     Active Substance: PREDNISONE
     Route: 042
  358. PREGABALIN [Concomitant]
     Active Substance: PREGABALIN
     Indication: Product used for unknown indication
     Route: 065
  359. PREGABALIN [Concomitant]
     Active Substance: PREGABALIN
     Route: 048
  360. PREGABALIN [Concomitant]
     Active Substance: PREGABALIN
     Indication: Product used for unknown indication
     Route: 065
  361. PREGABALIN [Concomitant]
     Active Substance: PREGABALIN
     Indication: Rheumatoid arthritis
  362. PSEUDOEPHEDRINE [Concomitant]
     Active Substance: PSEUDOEPHEDRINE
     Indication: Product used for unknown indication
     Route: 065
  363. PSEUDOEPHEDRINE [Concomitant]
     Active Substance: PSEUDOEPHEDRINE
     Indication: Rheumatoid arthritis
     Route: 065
  364. PSEUDOEPHEDRINE [Concomitant]
     Active Substance: PSEUDOEPHEDRINE
     Route: 065
  365. PSEUDOEPHEDRINE [Concomitant]
     Active Substance: PSEUDOEPHEDRINE
     Indication: Product used for unknown indication
     Route: 065
  366. PSEUDOEPHEDRINE [Concomitant]
     Active Substance: PSEUDOEPHEDRINE
     Route: 065
  367. PSEUDOEPHEDRINE [Concomitant]
     Active Substance: PSEUDOEPHEDRINE
     Route: 065
  368. QUETIAPINE FUMARATE [Concomitant]
     Active Substance: QUETIAPINE FUMARATE
     Indication: Product used for unknown indication
     Route: 065
  369. QUETIAPINE [Concomitant]
     Active Substance: QUETIAPINE
     Indication: Product used for unknown indication
     Route: 065
  370. RAMIPRIL [Concomitant]
     Active Substance: RAMIPRIL
     Indication: Product used for unknown indication
     Route: 065
  371. Reactine [Concomitant]
     Indication: Rheumatoid arthritis
     Route: 016
  372. Reactine [Concomitant]
     Indication: Product used for unknown indication
     Route: 048
  373. Reactine [Concomitant]
     Route: 048
  374. Reactine [Concomitant]
     Route: 048
  375. Reactine [Concomitant]
     Route: 065
  376. CETIRIZINE HYDROCHLORIDE\PSEUDOEPHEDRINE HYDROCHLORIDE [Concomitant]
     Active Substance: CETIRIZINE HYDROCHLORIDE\PSEUDOEPHEDRINE HYDROCHLORIDE
     Indication: Rheumatoid arthritis
     Route: 065
  377. CETIRIZINE HYDROCHLORIDE\PSEUDOEPHEDRINE HYDROCHLORIDE [Concomitant]
     Active Substance: CETIRIZINE HYDROCHLORIDE\PSEUDOEPHEDRINE HYDROCHLORIDE
     Route: 048
  378. CETIRIZINE HYDROCHLORIDE\PSEUDOEPHEDRINE HYDROCHLORIDE [Concomitant]
     Active Substance: CETIRIZINE HYDROCHLORIDE\PSEUDOEPHEDRINE HYDROCHLORIDE
     Indication: Rheumatoid arthritis
     Route: 065
  379. CETIRIZINE HYDROCHLORIDE\PSEUDOEPHEDRINE HYDROCHLORIDE [Concomitant]
     Active Substance: CETIRIZINE HYDROCHLORIDE\PSEUDOEPHEDRINE HYDROCHLORIDE
     Route: 048
  380. CETIRIZINE HYDROCHLORIDE\PSEUDOEPHEDRINE HYDROCHLORIDE [Concomitant]
     Active Substance: CETIRIZINE HYDROCHLORIDE\PSEUDOEPHEDRINE HYDROCHLORIDE
     Route: 065
  381. CETIRIZINE HYDROCHLORIDE\PSEUDOEPHEDRINE HYDROCHLORIDE [Concomitant]
     Active Substance: CETIRIZINE HYDROCHLORIDE\PSEUDOEPHEDRINE HYDROCHLORIDE
     Route: 065
  382. RITUXIMAB [Concomitant]
     Active Substance: RITUXIMAB
     Indication: Rheumatoid arthritis
     Route: 065
  383. RITUXIMAB [Concomitant]
     Active Substance: RITUXIMAB
     Indication: Product used for unknown indication
     Route: 058
  384. RITUXIMAB [Concomitant]
     Active Substance: RITUXIMAB
     Route: 042
  385. RITUXIMAB [Concomitant]
     Active Substance: RITUXIMAB
     Indication: Rheumatoid arthritis
     Route: 058
  386. RITUXIMAB [Concomitant]
     Active Substance: RITUXIMAB
     Route: 042
  387. RITUXIMAB [Concomitant]
     Active Substance: RITUXIMAB
     Route: 065
  388. RITUXIMAB [Concomitant]
     Active Substance: RITUXIMAB
     Route: 016
  389. RITUXIMAB [Concomitant]
     Active Substance: RITUXIMAB
     Route: 016
  390. DIETARY SUPPLEMENT\HERBALS [Concomitant]
     Active Substance: DIETARY SUPPLEMENT\HERBALS
     Indication: Product used for unknown indication
     Route: 065
  391. ALBUTEROL [Concomitant]
     Active Substance: ALBUTEROL
     Indication: Product used for unknown indication
     Route: 065
  392. ALBUTEROL [Concomitant]
     Active Substance: ALBUTEROL
     Indication: Product used for unknown indication
     Route: 065
  393. SIMPONI [Concomitant]
     Active Substance: GOLIMUMAB
     Indication: Rheumatoid arthritis
     Route: 058
  394. SIMPONI [Concomitant]
     Active Substance: GOLIMUMAB
     Indication: Psoriatic arthropathy
     Route: 058
  395. SIMPONI [Concomitant]
     Active Substance: GOLIMUMAB
     Indication: Product used for unknown indication
     Route: 065
  396. SIMPONI [Concomitant]
     Active Substance: GOLIMUMAB
     Route: 052
  397. SIMPONI [Concomitant]
     Active Substance: GOLIMUMAB
     Route: 042
  398. SULFASALAZINE [Concomitant]
     Active Substance: SULFASALAZINE
     Indication: Product used for unknown indication
     Route: 065
  399. SULFASALAZINE [Concomitant]
     Active Substance: SULFASALAZINE
     Route: 048
  400. SULFASALAZINE [Concomitant]
     Active Substance: SULFASALAZINE
     Route: 048
  401. SULFASALAZINE [Concomitant]
     Active Substance: SULFASALAZINE
     Route: 048
  402. SULFASALAZINE [Concomitant]
     Active Substance: SULFASALAZINE
     Route: 048
  403. SULFASALAZINE [Concomitant]
     Active Substance: SULFASALAZINE
     Route: 065
  404. SULFASALAZINE [Concomitant]
     Active Substance: SULFASALAZINE
     Route: 048
  405. SULFASALAZINE [Concomitant]
     Active Substance: SULFASALAZINE
     Indication: Product used for unknown indication
     Route: 048
  406. SULFASALAZINE [Concomitant]
     Active Substance: SULFASALAZINE
     Route: 065
  407. SULFASALAZINE [Concomitant]
     Active Substance: SULFASALAZINE
     Route: 048
  408. SULFASALAZINE [Concomitant]
     Active Substance: SULFASALAZINE
     Route: 048
  409. SULFASALAZINE [Concomitant]
     Active Substance: SULFASALAZINE
     Route: 058
  410. SULFASALAZINE [Concomitant]
     Active Substance: SULFASALAZINE
     Route: 048
  411. SULFASALAZINE [Concomitant]
     Active Substance: SULFASALAZINE
     Route: 048
  412. SULFASALAZINE [Concomitant]
     Active Substance: SULFASALAZINE
     Route: 058
  413. SULFASALAZINE [Concomitant]
     Active Substance: SULFASALAZINE
     Route: 048
  414. SULFASALAZINE [Concomitant]
     Active Substance: SULFASALAZINE
     Route: 048
  415. SULFASALAZINE [Concomitant]
     Active Substance: SULFASALAZINE
     Route: 048
  416. SULFASALAZINE [Concomitant]
     Active Substance: SULFASALAZINE
     Route: 048
  417. SULFASALAZINE [Concomitant]
     Active Substance: SULFASALAZINE
     Route: 065
  418. SULFASALAZINE [Concomitant]
     Active Substance: SULFASALAZINE
     Route: 048
  419. SULFASALAZINE [Concomitant]
     Active Substance: SULFASALAZINE
     Route: 065
  420. SULFASALAZINE [Concomitant]
     Active Substance: SULFASALAZINE
     Route: 048
  421. SULFASALAZINE [Concomitant]
     Active Substance: SULFASALAZINE
     Route: 065
  422. SULFASALAZINE [Concomitant]
     Active Substance: SULFASALAZINE
     Route: 048
  423. TUMS [Concomitant]
     Active Substance: CALCIUM CARBONATE
     Indication: Product used for unknown indication
     Route: 065
  424. USTEKINUMAB [Concomitant]
     Active Substance: USTEKINUMAB
     Indication: Product used for unknown indication
     Route: 058
  425. ZESTRIL [Concomitant]
     Active Substance: LISINOPRIL
     Indication: Product used for unknown indication
     Route: 065
  426. ZESTRIL [Concomitant]
     Active Substance: LISINOPRIL
     Route: 048
  427. TRAMADOL HYDROCHLORIDE [Concomitant]
     Active Substance: TRAMADOL HYDROCHLORIDE
     Indication: Product used for unknown indication
     Route: 065
  428. TRIAMCINOLONE ACETONIDE [Concomitant]
     Active Substance: TRIAMCINOLONE ACETONIDE
     Indication: Rheumatoid arthritis
     Route: 014
  429. TRIAMCINOLONE ACETONIDE [Concomitant]
     Active Substance: TRIAMCINOLONE ACETONIDE
     Route: 013
  430. PREDNISONE [Concomitant]
     Active Substance: PREDNISONE
     Indication: Rheumatoid arthritis
     Route: 048
  431. XELJANZ [Concomitant]
     Active Substance: TOFACITINIB CITRATE
     Indication: Rheumatoid arthritis
     Route: 065
  432. XELJANZ [Concomitant]
     Active Substance: TOFACITINIB CITRATE
     Indication: Psoriatic arthropathy
     Route: 048
  433. XELJANZ [Concomitant]
     Active Substance: TOFACITINIB CITRATE
     Indication: Product used for unknown indication
     Route: 065
  434. XELJANZ [Concomitant]
     Active Substance: TOFACITINIB CITRATE
     Dosage: 5 MILLIGRAM, QWK, 1 EVERY 1 WEEK
     Route: 048
  435. XELJANZ [Concomitant]
     Active Substance: TOFACITINIB CITRATE
     Indication: Rheumatoid arthritis
     Route: 065
  436. XELJANZ [Concomitant]
     Active Substance: TOFACITINIB CITRATE
     Route: 048
  437. XELJANZ [Concomitant]
     Active Substance: TOFACITINIB CITRATE
     Route: 065
  438. XELJANZ [Concomitant]
     Active Substance: TOFACITINIB CITRATE
     Route: 048
  439. XELJANZ [Concomitant]
     Active Substance: TOFACITINIB CITRATE
     Route: 065
  440. XELJANZ [Concomitant]
     Active Substance: TOFACITINIB CITRATE
     Route: 065
  441. XELJANZ [Concomitant]
     Active Substance: TOFACITINIB CITRATE
     Route: 065
  442. SULFAMETHOXAZOLE\TRIMETHOPRIM [Concomitant]
     Active Substance: SULFAMETHOXAZOLE\TRIMETHOPRIM
     Indication: Product used for unknown indication
     Route: 065
  443. SULFAMETHOXAZOLE\TRIMETHOPRIM [Concomitant]
     Active Substance: SULFAMETHOXAZOLE\TRIMETHOPRIM
     Route: 067
  444. SULFAMETHOXAZOLE [Concomitant]
     Active Substance: SULFAMETHOXAZOLE
     Indication: Rheumatoid arthritis
  445. STELARA [Concomitant]
     Active Substance: USTEKINUMAB
     Indication: Psoriatic arthropathy
     Route: 042
  446. STELARA [Concomitant]
     Active Substance: USTEKINUMAB
     Indication: Product used for unknown indication
     Route: 058
  447. STELARA [Concomitant]
     Active Substance: USTEKINUMAB
     Route: 042
  448. STELARA [Concomitant]
     Active Substance: USTEKINUMAB
     Route: 065
  449. PREVACID [Concomitant]
     Active Substance: LANSOPRAZOLE
     Indication: Product used for unknown indication
     Route: 048
  450. SULFASALAZINE [Concomitant]
     Active Substance: SULFASALAZINE
     Indication: Rheumatoid arthritis
     Route: 048
  451. SULFASALAZINE [Concomitant]
     Active Substance: SULFASALAZINE
     Route: 048
  452. SULFASALAZINE [Concomitant]
     Active Substance: SULFASALAZINE
     Route: 048
  453. DIETARY SUPPLEMENT [Concomitant]
     Active Substance: DIETARY SUPPLEMENT
     Indication: Product used for unknown indication
     Route: 065
  454. PERIOGARD [Concomitant]
     Active Substance: CHLORHEXIDINE GLUCONATE
     Indication: Product used for unknown indication
     Route: 048
  455. ALFACALCIDOL [Concomitant]
     Active Substance: ALFACALCIDOL
     Indication: Product used for unknown indication
     Route: 065
  456. IODINE [Concomitant]
     Active Substance: IODINE
     Indication: Product used for unknown indication
     Route: 065
  457. ENTYVIO [Concomitant]
     Active Substance: VEDOLIZUMAB
     Indication: Product used for unknown indication
     Route: 065
  458. DILTIAZEM HYDROCHLORIDE [Concomitant]
     Active Substance: DILTIAZEM HYDROCHLORIDE
     Indication: Product used for unknown indication
     Route: 065
  459. DILTIAZEM HYDROCHLORIDE [Concomitant]
     Active Substance: DILTIAZEM HYDROCHLORIDE
     Route: 042
  460. DILTIAZEM [Concomitant]
     Active Substance: DILTIAZEM
     Indication: Product used for unknown indication
     Route: 065
  461. DICLOFENAC DIETHYLAMINE [Concomitant]
     Active Substance: DICLOFENAC DIETHYLAMINE
     Indication: Product used for unknown indication
     Route: 058
  462. DICLOFENAC DIETHYLAMINE [Concomitant]
     Active Substance: DICLOFENAC DIETHYLAMINE
     Route: 065
  463. DICLOFENAC DIETHYLAMINE [Concomitant]
     Active Substance: DICLOFENAC DIETHYLAMINE
     Route: 065
  464. DICLOFENAC DIETHYLAMINE [Concomitant]
     Active Substance: DICLOFENAC DIETHYLAMINE
     Route: 047
  465. DICLOFENAC DIETHYLAMINE [Concomitant]
     Active Substance: DICLOFENAC DIETHYLAMINE
     Route: 048
  466. DICLOFENAC DIETHYLAMINE [Concomitant]
     Active Substance: DICLOFENAC DIETHYLAMINE
     Route: 047
  467. COD LIVER OIL [Concomitant]
     Active Substance: COD LIVER OIL
     Indication: Product used for unknown indication
     Route: 065
  468. CERTOLIZUMAB PEGOL [Concomitant]
     Active Substance: CERTOLIZUMAB PEGOL
     Indication: Product used for unknown indication
     Route: 065
  469. CALCIUM\CHOLECALCIFEROL [Concomitant]
     Active Substance: CALCIUM\CHOLECALCIFEROL
     Indication: Product used for unknown indication
     Route: 065
  470. REMICADE [Concomitant]
     Active Substance: INFLIXIMAB
     Indication: Product used for unknown indication
     Route: 065
  471. PLAQUENIL [Concomitant]
     Active Substance: HYDROXYCHLOROQUINE SULFATE
     Indication: Product used for unknown indication
     Route: 065
  472. PERCOCET [Concomitant]
     Active Substance: ACETAMINOPHEN\OXYCODONE HYDROCHLORIDE
     Indication: Product used for unknown indication
     Route: 065
  473. PARA-AMINOSALICYLIC ACID [Concomitant]
     Active Substance: AMINOSALICYLIC ACID
     Indication: Product used for unknown indication
     Route: 065
  474. OTEZLA [Concomitant]
     Active Substance: APREMILAST
     Indication: Product used for unknown indication
     Route: 065
  475. KEVZARA [Concomitant]
     Active Substance: SARILUMAB
     Indication: Rheumatoid arthritis
     Route: 065
  476. KEVZARA [Concomitant]
     Active Substance: SARILUMAB
     Indication: Product used for unknown indication
     Route: 003
  477. ETHINYL ESTRADIOL\NORETHINDRONE [Concomitant]
     Active Substance: ETHINYL ESTRADIOL\NORETHINDRONE
     Indication: Product used for unknown indication
     Route: 065
  478. DIPHENHYDRAMINE HYDROCHLORIDE [Concomitant]
     Active Substance: DIPHENHYDRAMINE HYDROCHLORIDE
     Indication: Product used for unknown indication
     Route: 065
  479. CALTRATE WITH VITAMIN D [Concomitant]
     Active Substance: CALCIUM CARBONATE\CHOLECALCIFEROL
     Indication: Product used for unknown indication
     Route: 065
  480. EMEND [Concomitant]
     Active Substance: APREPITANT
     Indication: Rheumatoid arthritis
     Route: 048
  481. EMEND [Concomitant]
     Active Substance: APREPITANT
     Indication: Product used for unknown indication
     Route: 065
  482. CORTISONE [Concomitant]
     Active Substance: CORTISONE
     Indication: Rheumatoid arthritis
     Route: 048
  483. CORTISONE [Concomitant]
     Active Substance: CORTISONE
     Route: 065
  484. CORTISONE [Concomitant]
     Active Substance: CORTISONE
     Route: 058
  485. CORTISONE [Concomitant]
     Active Substance: CORTISONE
     Route: 048
  486. CORTISONE [Concomitant]
     Active Substance: CORTISONE
     Route: 003
  487. CORTISONE [Concomitant]
     Active Substance: CORTISONE
     Route: 058
  488. CORTISONE [Concomitant]
     Active Substance: CORTISONE
     Route: 065
  489. IBUPROFEN [Concomitant]
     Active Substance: IBUPROFEN
     Indication: Product used for unknown indication
     Route: 065
  490. Gramicidin;Neomycin sulfate;Nystatin [Concomitant]
     Indication: Product used for unknown indication
     Route: 065
  491. HYDROXYCHLOROQUINE SULFATE [Concomitant]
     Active Substance: HYDROXYCHLOROQUINE SULFATE
     Indication: Rheumatoid arthritis
     Route: 005
  492. HYDROXYCHLOROQUINE SULFATE [Concomitant]
     Active Substance: HYDROXYCHLOROQUINE SULFATE
     Route: 048
  493. HYDROXYCHLOROQUINE SULFATE [Concomitant]
     Active Substance: HYDROXYCHLOROQUINE SULFATE
     Route: 065
  494. HYDROXYCHLOROQUINE SULFATE [Concomitant]
     Active Substance: HYDROXYCHLOROQUINE SULFATE
     Route: 048
  495. HYDROXYCHLOROQUINE SULFATE [Concomitant]
     Active Substance: HYDROXYCHLOROQUINE SULFATE
     Route: 048
  496. HYDROXYCHLOROQUINE SULFATE [Concomitant]
     Active Substance: HYDROXYCHLOROQUINE SULFATE
     Route: 016
  497. HYDROXYCHLOROQUINE SULFATE [Concomitant]
     Active Substance: HYDROXYCHLOROQUINE SULFATE
     Route: 048
  498. HYDROXYCHLOROQUINE SULFATE [Concomitant]
     Active Substance: HYDROXYCHLOROQUINE SULFATE
     Route: 048
  499. HYDROXYCHLOROQUINE SULFATE [Concomitant]
     Active Substance: HYDROXYCHLOROQUINE SULFATE
     Route: 065
  500. DOXYCYCLINE [Concomitant]
     Active Substance: DOXYCYCLINE
     Indication: Rheumatoid arthritis
     Route: 005
  501. DOXYCYCLINE [Concomitant]
     Active Substance: DOXYCYCLINE
     Route: 005
  502. CYANOCOBALAMIN [Concomitant]
     Active Substance: CYANOCOBALAMIN
     Indication: Product used for unknown indication
     Route: 065
  503. OXYCODONE [Concomitant]
     Active Substance: OXYCODONE
     Indication: Product used for unknown indication
     Route: 065
  504. CALCIUM [Concomitant]
     Active Substance: CALCIUM
     Indication: Product used for unknown indication
     Route: 065
  505. PREDNISOLONE [Concomitant]
     Active Substance: PREDNISOLONE
     Indication: Product used for unknown indication
     Route: 065
  506. PREDNISOLONE [Concomitant]
     Active Substance: PREDNISOLONE
     Route: 065
  507. PREDNISOLONE [Concomitant]
     Active Substance: PREDNISOLONE
     Route: 065

REACTIONS (152)
  - Abdominal discomfort [Fatal]
  - Abdominal pain upper [Fatal]
  - Adjustment disorder with depressed mood [Fatal]
  - Alopecia [Fatal]
  - Amnesia [Fatal]
  - Anti-cyclic citrullinated peptide antibody positive [Fatal]
  - Anxiety [Fatal]
  - Arthralgia [Fatal]
  - Arthritis [Fatal]
  - Arthropathy [Fatal]
  - Asthenia [Fatal]
  - Asthma [Fatal]
  - Autoimmune disorder [Fatal]
  - Blister [Fatal]
  - Blood cholesterol increased [Fatal]
  - Bone erosion [Fatal]
  - Breast cancer stage III [Fatal]
  - C-reactive protein abnormal [Fatal]
  - C-reactive protein increased [Fatal]
  - Chest pain [Fatal]
  - Colitis ulcerative [Fatal]
  - Condition aggravated [Fatal]
  - Confusional state [Fatal]
  - Contusion [Fatal]
  - Crohn^s disease [Fatal]
  - Decreased appetite [Fatal]
  - Deep vein thrombosis postoperative [Fatal]
  - Delirium [Fatal]
  - Depression [Fatal]
  - Diarrhoea [Fatal]
  - Discomfort [Fatal]
  - Dislocation of vertebra [Fatal]
  - Dizziness [Fatal]
  - Drug hypersensitivity [Fatal]
  - Drug tolerance decreased [Fatal]
  - Dry mouth [Fatal]
  - Dyspnoea [Fatal]
  - Duodenal ulcer perforation [Fatal]
  - Dyspepsia [Fatal]
  - Ear infection [Fatal]
  - Exostosis [Fatal]
  - Facet joint syndrome [Fatal]
  - Fatigue [Fatal]
  - Feeling hot [Fatal]
  - Fibromyalgia [Fatal]
  - Folliculitis [Fatal]
  - Foot deformity [Fatal]
  - Frequent bowel movements [Fatal]
  - Gait disturbance [Fatal]
  - Gait inability [Fatal]
  - Gastrointestinal disorder [Fatal]
  - General physical health deterioration [Fatal]
  - Glossodynia [Fatal]
  - Grip strength [Fatal]
  - Grip strength decreased [Fatal]
  - Hand deformity [Fatal]
  - Headache [Fatal]
  - Helicobacter infection [Fatal]
  - Hepatic cirrhosis [Fatal]
  - Hepatic enzyme increased [Fatal]
  - Hip arthroplasty [Fatal]
  - Hypercholesterolaemia [Fatal]
  - Hypersensitivity [Fatal]
  - Hypertension [Fatal]
  - Hypoaesthesia [Fatal]
  - Ill-defined disorder [Fatal]
  - Impaired healing [Fatal]
  - Infection [Fatal]
  - Inflammation [Fatal]
  - Infusion related reaction [Fatal]
  - Injury [Fatal]
  - Insomnia [Fatal]
  - Irritable bowel syndrome [Fatal]
  - Joint dislocation [Fatal]
  - Joint range of motion decreased [Fatal]
  - Joint stiffness [Fatal]
  - Joint swelling [Fatal]
  - Laboratory test abnormal [Fatal]
  - Laryngitis [Fatal]
  - Lip dry [Fatal]
  - Liver disorder [Fatal]
  - Liver injury [Fatal]
  - Lower limb fracture [Fatal]
  - Lower respiratory tract infection [Fatal]
  - Lung disorder [Fatal]
  - Lupus vulgaris [Fatal]
  - Lupus-like syndrome [Fatal]
  - Malaise [Fatal]
  - Memory impairment [Fatal]
  - Migraine [Fatal]
  - Mobility decreased [Fatal]
  - Muscle injury [Fatal]
  - Muscle spasms [Fatal]
  - Muscular weakness [Fatal]
  - Musculoskeletal pain [Fatal]
  - Musculoskeletal stiffness [Fatal]
  - Nasopharyngitis [Fatal]
  - Nausea [Fatal]
  - Night sweats [Fatal]
  - Obesity [Fatal]
  - Oedema [Fatal]
  - Oedema peripheral [Fatal]
  - Osteoarthritis [Fatal]
  - Osteoporosis [Fatal]
  - Pain [Fatal]
  - Pain in extremity [Fatal]
  - Pancreatitis [Fatal]
  - Paraesthesia [Fatal]
  - Pemphigus [Fatal]
  - Pericarditis [Fatal]
  - Peripheral swelling [Fatal]
  - Peripheral venous disease [Fatal]
  - Pneumonia [Fatal]
  - Porphyria acute [Fatal]
  - Pregnancy [Fatal]
  - Pruritus [Fatal]
  - Psoriatic arthropathy [Fatal]
  - Pulmonary fibrosis [Fatal]
  - Pyrexia [Fatal]
  - Rash [Fatal]
  - Rectal haemorrhage [Fatal]
  - Red blood cell sedimentation rate increased [Fatal]
  - Respiratory disorder [Fatal]
  - Retinitis [Fatal]
  - Rheumatic fever [Fatal]
  - Rheumatoid arthritis [Fatal]
  - Rheumatoid factor positive [Fatal]
  - Road traffic accident [Fatal]
  - Sinusitis [Fatal]
  - Sleep disorder [Fatal]
  - Sleep disorder due to a general medical condition [Fatal]
  - Stomatitis [Fatal]
  - Swelling [Fatal]
  - Swollen joint count increased [Fatal]
  - Synovitis [Fatal]
  - Systemic lupus erythematosus [Fatal]
  - Type 2 diabetes mellitus [Fatal]
  - Urticaria [Fatal]
  - Visual impairment [Fatal]
  - Vomiting [Fatal]
  - Weight decreased [Fatal]
  - Weight increased [Fatal]
  - Wheezing [Fatal]
  - White blood cell count increased [Fatal]
  - Wound [Fatal]
  - Wound infection [Fatal]
  - X-ray abnormal [Fatal]
  - Sciatica [Fatal]
  - Bursitis [Fatal]
  - Knee arthroplasty [Fatal]
  - Off label use [Fatal]
  - Intentional product use issue [Fatal]
